FAERS Safety Report 4404246-8 (Version None)
Quarter: 2004Q3

REPORT INFORMATION
  Report Type: 
  Country: None (occurrence: None)
  Receive Date: 20040719
  Receipt Date: 20040322
  Transmission Date: 20050211
  Serious: Yes (Death)
  Sender: FDA-Public Use
  Company Number: 040324-0000321

PATIENT
  Age: 39 Year
  Sex: Male

DRUGS (1)
  1. METHAMPHETAMINE HCL [Suspect]

REACTIONS (16)
  - APOPTOSIS [None]
  - BRAIN HYPOXIA [None]
  - BRAIN OEDEMA [None]
  - DRUG ABUSER [None]
  - DRUG TOXICITY [None]
  - HYPOXIA [None]
  - INFECTION [None]
  - INFLAMMATION [None]
  - LIVER DISORDER [None]
  - MYOCARDIAL FIBROSIS [None]
  - NEPHROTIC SYNDROME [None]
  - NEURON-SPECIFIC ENOLASE DECREASED [None]
  - PULMONARY HAEMORRHAGE [None]
  - PULMONARY OEDEMA [None]
  - RENAL TUBULAR DISORDER [None]
  - VENOUS STASIS [None]
